FAERS Safety Report 12359943 (Version 2)
Quarter: 2016Q3

REPORT INFORMATION
  Report Type: Spontaneous
  Country: US (occurrence: US)
  Receive Date: 20160512
  Receipt Date: 20160830
  Transmission Date: 20161109
  Serious: Yes (Death, Other)
  Sender: FDA-Public Use
  Company Number: US-GLAXOSMITHKLINE-US2016066283

PATIENT
  Age: 77 Year
  Sex: Male
  Weight: 90.7 kg

DRUGS (4)
  1. INCRUSE ELLIPTA [Suspect]
     Active Substance: UMECLIDINIUM BROMIDE
     Indication: CHRONIC OBSTRUCTIVE PULMONARY DISEASE
     Dosage: 1 PUFF(S), QD
     Route: 055
     Dates: start: 20160418, end: 20160506
  2. PULMICORT TURBUHALER [Concomitant]
     Active Substance: BUDESONIDE
  3. JANUMET [Concomitant]
     Active Substance: METFORMIN HYDROCHLORIDE\SITAGLIPTIN PHOSPHATE
  4. ELIQUIS [Concomitant]
     Active Substance: APIXABAN

REACTIONS (4)
  - Depressed level of consciousness [Not Recovered/Not Resolved]
  - Fall [Not Recovered/Not Resolved]
  - Cognitive disorder [Not Recovered/Not Resolved]
  - Death [Fatal]

NARRATIVE: CASE EVENT DATE: 20160428
